FAERS Safety Report 8587236-3 (Version None)
Quarter: 2012Q3

REPORT INFORMATION
  Report Type: 
  Country: None (occurrence: None)
  Receive Date: 20120810
  Receipt Date: 20110818
  Transmission Date: 20120928
  Serious: No
  Sender: FDA-Public Use
  Company Number: US-ASTRAZENECA-2011SE49705

PATIENT
  Age: 63 Year
  Sex: Female

DRUGS (1)
  1. ARIMIDEX [Suspect]
     Indication: BREAST CANCER
     Route: 048

REACTIONS (5)
  - INSOMNIA [None]
  - WEIGHT INCREASED [None]
  - OSTEOPOROSIS [None]
  - ALOPECIA [None]
  - OVARIAN CYST [None]
